FAERS Safety Report 18117146 (Version 3)
Quarter: 2020Q4

REPORT INFORMATION
  Report Type: Report from Study
  Country: JP (occurrence: JP)
  Receive Date: 20200805
  Receipt Date: 20201027
  Transmission Date: 20210113
  Serious: Yes (Life-Threatening, Other)
  Sender: FDA-Public Use
  Company Number: JP-AMGEN-JPN-20200209154

PATIENT
  Age: 91 Year
  Sex: Male

DRUGS (11)
  1. APREMILAST [Suspect]
     Active Substance: APREMILAST
     Dosage: 30 MILLIGRAM, BID
     Route: 048
     Dates: start: 20190729, end: 20190922
  2. MIYA-BM [Concomitant]
     Active Substance: CLOSTRIDIUM BUTYRICUM SPORES STRAIN M-55
     Indication: PROPHYLAXIS
     Dosage: UNK, AS NECESSARY
     Route: 048
  3. APREMILAST [Suspect]
     Active Substance: APREMILAST
     Dosage: 40 MILLIGRAM, BID
     Route: 048
     Dates: start: 20190725, end: 20190725
  4. APREMILAST [Suspect]
     Active Substance: APREMILAST
     Dosage: 10 MILLIGRAM, BID
     Route: 048
     Dates: start: 20190723, end: 20190723
  5. APREMILAST [Suspect]
     Active Substance: APREMILAST
     Dosage: 30 MILLIGRAM, BID
     Route: 048
     Dates: start: 20190724, end: 20190724
  6. APREMILAST [Suspect]
     Active Substance: APREMILAST
     Indication: PSORIASIS
     Dosage: 10 MILLIGRAM, QD
     Route: 048
     Dates: start: 20190722, end: 20190722
  7. APREMILAST [Suspect]
     Active Substance: APREMILAST
     Dosage: 30 MILLIGRAM, QD
     Route: 048
     Dates: start: 20190923, end: 20200225
  8. APREMILAST [Suspect]
     Active Substance: APREMILAST
     Dosage: 50 MILLIGRAM, DAILY (TWO DIVIDED DOSE)
     Route: 048
     Dates: start: 20190728, end: 20190728
  9. DOVOBET [Concomitant]
     Active Substance: BETAMETHASONE\CALCIPOTRIENE
     Indication: PSORIASIS
     Dosage: AS MUCH AS SUFFICES
     Route: 061
  10. CALONAL [Concomitant]
     Active Substance: ACETAMINOPHEN
     Indication: PROPHYLAXIS
     Dosage: UNK UNK, AS NECESSARY
     Route: 048
  11. PRIMPERAN [Concomitant]
     Active Substance: METOCLOPRAMIDE HYDROCHLORIDE
     Indication: PROPHYLAXIS
     Dosage: 15 MILLIGRAM
     Route: 048

REACTIONS (2)
  - Colon cancer [Unknown]
  - Colon cancer metastatic [Unknown]

NARRATIVE: CASE EVENT DATE: 20200110
